FAERS Safety Report 9668142 (Version 2)
Quarter: 2013Q4

REPORT INFORMATION
  Report Type: Spontaneous
  Country: US (occurrence: None)
  Receive Date: 20131101
  Receipt Date: 20131114
  Transmission Date: 20140711
  Serious: Yes (Other)
  Sender: FDA-Public Use
  Company Number: 2013SA110522

PATIENT
  Age: 23 Year
  Sex: Female

DRUGS (1)
  1. ICY HOT [Suspect]
     Indication: MUSCULOSKELETAL PAIN
     Dates: start: 201310

REACTIONS (10)
  - Blister [None]
  - Skin exfoliation [None]
  - Skin burning sensation [None]
  - Application site burn [None]
  - Application site vesicles [None]
  - Application site exfoliation [None]
  - Chemical injury [None]
  - Activities of daily living impaired [None]
  - Application site scar [None]
  - Burns second degree [None]
